FAERS Safety Report 9110105 (Version 1)
Quarter: 2013Q1

REPORT INFORMATION
  Report Type: Report from Study
  Country: US (occurrence: US)
  Receive Date: 20130222
  Receipt Date: 20130222
  Transmission Date: 20140127
  Serious: Yes (Other)
  Sender: FDA-Public Use
  Company Number: US-BAYER-2013-012243

PATIENT
  Age: 55 Year
  Sex: Male

DRUGS (1)
  1. STIVARGA [Suspect]
     Indication: COLON CANCER METASTATIC
     Dosage: 4 X 40 MG (4 TABLETS DAILY X 3 WEEKS, THEN 1 WEEK OFF)
     Route: 048
     Dates: start: 20130125, end: 20130205

REACTIONS (6)
  - Hallucination, visual [Recovered/Resolved]
  - Lethargy [Recovered/Resolved]
  - Dry mouth [None]
  - Fatigue [None]
  - Dysphonia [None]
  - Decreased appetite [None]
